FAERS Safety Report 21373541 (Version 1)
Quarter: 2022Q3

REPORT INFORMATION
  Report Type: Spontaneous
  Country: RO (occurrence: RO)
  Receive Date: 20220925
  Receipt Date: 20220925
  Transmission Date: 20221027
  Serious: Yes (Other)
  Sender: FDA-Public Use
  Company Number: RO-BRISTOL-MYERS SQUIBB COMPANY-2022-110349

PATIENT
  Age: 65 Year
  Sex: Male
  Weight: 89 kg

DRUGS (2)
  1. NIVOLUMAB [Suspect]
     Active Substance: NIVOLUMAB
     Indication: Squamous cell carcinoma of head and neck
     Dosage: DOSE : 240MG;     FREQ : EVERY 2 WEEKS
     Route: 065
     Dates: start: 202007
  2. CETUXIMAB [Concomitant]
     Active Substance: CETUXIMAB
     Indication: Hypopharyngeal neoplasm
     Route: 065
     Dates: start: 202001

REACTIONS (4)
  - Adrenal insufficiency [Unknown]
  - Colitis [Unknown]
  - Hepatic cytolysis [Unknown]
  - Diarrhoea [Unknown]

NARRATIVE: CASE EVENT DATE: 20210201
